FAERS Safety Report 9842061 (Version 1)
Quarter: 2014Q1

REPORT INFORMATION
  Report Type: Report from Study
  Country: FR (occurrence: FR)
  Receive Date: 20140124
  Receipt Date: 20140124
  Transmission Date: 20141002
  Serious: Yes (Hospitalization)
  Sender: FDA-Public Use
  Company Number: FR-INCYTE CORPORATION-2013IN003151

PATIENT
  Age: 30 Year
  Sex: Female

DRUGS (1)
  1. INC424 [Suspect]
     Indication: HODGKIN^S DISEASE
     Dosage: 20 MG, QD
     Route: 048
     Dates: start: 20130719, end: 20131104

REACTIONS (1)
  - Pneumocystis jirovecii pneumonia [Recovered/Resolved]
